FAERS Safety Report 4548100-X (Version None)
Quarter: 2005Q1

REPORT INFORMATION
  Report Type: 
  Country: None (occurrence: None)
  Receive Date: 20050105
  Receipt Date: 20050105
  Transmission Date: 20050727
  Serious: No
  Sender: FDA-Public Use
  Company Number: None

PATIENT
  Sex: Male

DRUGS (4)
  1. AMIODARONE HYDROCHLORIDE [Suspect]
     Indication: ATRIAL FIBRILLATION
     Dosage: 200MG BIB
  2. COUMADIN [Suspect]
  3. ZETIA [Suspect]
     Dosage: 10 MG QD
  4. ATENOLOL [Suspect]
     Dosage: 25 MG B.I.D.

REACTIONS (3)
  - BLINDNESS UNILATERAL [None]
  - HYPERTROPHIC CARDIOMYOPATHY [None]
  - OPTIC NEUROPATHY [None]
